FAERS Safety Report 17468491 (Version 1)
Quarter: 2020Q1

REPORT INFORMATION
  Report Type: Report from Study
  Country: IT (occurrence: IT)
  Receive Date: 20200227
  Receipt Date: 20200227
  Transmission Date: 20200409
  Serious: Yes (Hospitalization)
  Sender: FDA-Public Use
  Company Number: IT-MYLANLABS-2020M1020837

PATIENT
  Age: 78 Year
  Sex: Female

DRUGS (1)
  1. PRAMIPEXOLE. [Suspect]
     Active Substance: PRAMIPEXOLE
     Indication: PRODUCT USED FOR UNKNOWN INDICATION
     Dosage: 0.7 MILLIGRAM, TOTAL (0.7 MILLIGRAM, TOTAL)
     Route: 048
     Dates: start: 20191225, end: 20191225

REACTIONS (3)
  - Nausea [Unknown]
  - Confusional state [Unknown]
  - Medication error [Unknown]

NARRATIVE: CASE EVENT DATE: 20191225
